FAERS Safety Report 19505478 (Version 1)
Quarter: 2021Q3

REPORT INFORMATION
  Report Type: Spontaneous
  Country: DE (occurrence: DE)
  Receive Date: 20210708
  Receipt Date: 20210708
  Transmission Date: 20211014
  Serious: Yes (Life-Threatening, Hospitalization, Other)
  Sender: FDA-Public Use
  Company Number: DE-TEVA-2021-DE-1929529

PATIENT
  Age: 82 Year
  Sex: Male
  Weight: 72 kg

DRUGS (10)
  1. APIXABAN [Concomitant]
     Active Substance: APIXABAN
     Dosage: 5 MILLIGRAM DAILY; 1?0?1?0
     Route: 048
  2. BISOPROLOL [Concomitant]
     Active Substance: BISOPROLOL
     Dosage: 5 MILLIGRAM DAILY; 1?0?0?0
     Route: 048
  3. SPIRONOLACTON [Interacting]
     Active Substance: SPIRONOLACTONE
     Dosage: NK MG, TABLETS
     Route: 048
  4. PANTOPRAZOL [Concomitant]
     Active Substance: PANTOPRAZOLE SODIUM
     Dosage: 40 MILLIGRAM DAILY; 1?0?0?0
     Route: 048
  5. SIMVASTATIN. [Concomitant]
     Active Substance: SIMVASTATIN
     Dosage: 40 MILLIGRAM DAILY; 0?0?1?0
     Route: 048
  6. LEVOTHYROXIN?NATRIUM [Concomitant]
     Active Substance: LEVOTHYROXINE SODIUM
     Dosage: 100 MICROGRAM DAILY; 1?0?0?0
     Route: 048
  7. TAMSULOSIN [Concomitant]
     Active Substance: TAMSULOSIN
     Dosage: .4 MILLIGRAM DAILY;  0?0?1?0, SUSTAINED?RELEASE CAPSULES
     Route: 048
  8. RAMIPRIL. [Interacting]
     Active Substance: RAMIPRIL
     Dosage: 5 MILLIGRAM DAILY; 1?0?0?0
     Route: 048
  9. ALLOPURINOL. [Interacting]
     Active Substance: ALLOPURINOL
     Dosage: 100 MILLIGRAM DAILY; 0?1?0?0
     Route: 048
  10. TORASEMID [Suspect]
     Active Substance: TORSEMIDE
     Dosage: 10 MILLIGRAM DAILY; 1?0?0?0
     Route: 048

REACTIONS (7)
  - Metabolic acidosis [Unknown]
  - Product monitoring error [Unknown]
  - Labelled drug-drug interaction medication error [Unknown]
  - Dyspnoea [Unknown]
  - Hyperkalaemia [Unknown]
  - Renal impairment [Unknown]
  - Therapeutic drug monitoring analysis not performed [Unknown]
